FAERS Safety Report 23861097 (Version 1)
Quarter: 2024Q2

REPORT INFORMATION
  Report Type: Spontaneous
  Country: US (occurrence: US)
  Receive Date: 20240516
  Receipt Date: 20240516
  Transmission Date: 20240716
  Serious: No
  Sender: FDA-Public Use
  Company Number: US-UCBSA-2023052334

PATIENT
  Sex: Female

DRUGS (1)
  1. NEUPRO [Suspect]
     Active Substance: ROTIGOTINE
     Indication: Restless legs syndrome
     Dosage: 8 MILLIGRAM, ONCE DAILY (QD)
     Route: 062
     Dates: start: 202310

REACTIONS (5)
  - Fluid retention [Unknown]
  - Weight increased [Unknown]
  - Restless legs syndrome [Unknown]
  - Diplopia [Unknown]
  - Compulsions [Unknown]

NARRATIVE: CASE EVENT DATE: 20230101
